FAERS Safety Report 8300445 (Version 4)
Quarter: 2016Q1

REPORT INFORMATION
  Report Type: Spontaneous
  Country: US (occurrence: US)
  Receive Date: 20111219
  Receipt Date: 20160202
  Transmission Date: 20160526
  Serious: Yes (Other)
  Sender: FDA-Public Use
  Company Number: PHEH2011US011445

PATIENT
  Age: 59 Year
  Sex: Male

DRUGS (7)
  1. DIFLUCAN [Suspect]
     Active Substance: FLUCONAZOLE
     Indication: PRODUCT USED FOR UNKNOWN INDICATION
     Route: 065
  2. DICLOFENAC SODIUM. [Suspect]
     Active Substance: DICLOFENAC SODIUM
     Indication: PRODUCT USED FOR UNKNOWN INDICATION
     Route: 065
  3. VOLTAREN [Suspect]
     Active Substance: DICLOFENAC SODIUM
     Dosage: 50 MG, PRN  (AS NEEDED)
     Route: 065
  4. VOLTAREN XR [Suspect]
     Active Substance: DICLOFENAC SODIUM
     Indication: BURSITIS
     Dosage: 75 MG, PRN (AS NEEDED)
     Route: 065
  5. VOLTAREN XR [Suspect]
     Active Substance: DICLOFENAC SODIUM
     Dosage: 100 MG, UNK
     Route: 065
  6. VOLTAREN [Suspect]
     Active Substance: DICLOFENAC SODIUM
     Indication: PAIN
     Dosage: 25 MG, PRN (AS NEEDED)
     Route: 065
  7. INDOCIN [Suspect]
     Active Substance: INDOMETHACIN\INDOMETHACIN SODIUM
     Indication: PRODUCT USED FOR UNKNOWN INDICATION
     Route: 065

REACTIONS (3)
  - Stress [Unknown]
  - Drug ineffective [Unknown]
  - Blood pressure increased [Unknown]
